FAERS Safety Report 8332422-0 (Version None)
Quarter: 2012Q2

REPORT INFORMATION
  Report Type: 
  Country: None (occurrence: None)
  Receive Date: 20120503
  Receipt Date: 20120423
  Transmission Date: 20120825
  Serious: Yes (Other)
  Sender: FDA-Public Use
  Company Number: CA-BAYER-2012-039771

PATIENT
  Sex: Female

DRUGS (4)
  1. EFFEXOR [Concomitant]
     Indication: DEPRESSION
     Dosage: DAILY DOSE 75 MG
     Route: 048
  2. OMEPRAZOLE [Concomitant]
     Dosage: DAILY DOSE 20 MG
     Route: 048
  3. MIRENA [Suspect]
     Indication: CONTRACEPTION
     Dosage: UNK
     Dates: start: 20080401, end: 20090101
  4. MIRENA [Suspect]
     Dosage: UNK
     Dates: start: 20120207, end: 20120424

REACTIONS (2)
  - DEPRESSION SUICIDAL [None]
  - PANIC ATTACK [None]
